FAERS Safety Report 9844525 (Version 1)
Quarter: 2013Q4

REPORT INFORMATION
  Report Type: Spontaneous
  Country: US (occurrence: None)
  Receive Date: 20131223
  Receipt Date: 20131223
  Transmission Date: 20140711
  Serious: Yes (Other)
  Sender: FDA-Public Use
  Company Number: 45303

PATIENT
  Age: 65 Year
  Sex: Female
  Weight: 84.37 kg

DRUGS (9)
  1. GLASSIA (ALPHA-PROTEINASE INHIBITOR (HUMAN)) KAMADA [Suspect]
     Indication: ALPHA-1 ANTI-TRYPSIN DECREASED
     Dosage: 5000+/-10% WEEKLY IV
     Route: 042
     Dates: start: 20131203
  2. ATENOLOL [Concomitant]
  3. CYCLOBENZAPRINE [Concomitant]
  4. OMEPRAZOLE [Concomitant]
  5. CYMBALTA [Concomitant]
  6. LYRICA [Concomitant]
  7. PREDNISONE [Concomitant]
  8. VENTALIN HFA [Concomitant]
  9. ZOLPIDEM [Concomitant]

REACTIONS (2)
  - Pruritus [None]
  - Rash generalised [None]
